FAERS Safety Report 9789693 (Version 1)
Quarter: 2013Q4

REPORT INFORMATION
  Report Type: Spontaneous
  Country: US (occurrence: None)
  Receive Date: 20131227
  Receipt Date: 20131227
  Transmission Date: 20140711
  Serious: Yes (Hospitalization)
  Sender: FDA-Public Use
  Company Number: 2013AP010728

PATIENT
  Age: 60 Year
  Sex: Male

DRUGS (15)
  1. NEVIRAPINE [Suspect]
  2. RIVAROXABAN [Suspect]
  3. ABACAVIR W/LAMIVUDINE (ABACAVIR W/LAMIVUDINE) [Concomitant]
  4. LAMIVUDINE [Concomitant]
  5. ZIDOVUDINE (ZIDOVUDINE) [Concomitant]
  6. AMLODIPINE (AMLODIPINE) [Concomitant]
  7. METOPROLOL (METOPROLOL) [Concomitant]
  8. LISINOPRIL (LISINOPRIL) [Concomitant]
  9. HYDROCHLOROTHIAZIDE (HYDROCHLOROTHIAZIDE) [Concomitant]
  10. ATORVASTATIN (ATORVASTATIN) [Concomitant]
  11. ACETYLSALICYLIC ACID (ACETYLSALICYLIC ACID) [Concomitant]
  12. CELECOXIB (CELECOXIB) [Concomitant]
  13. OMEPRAZOLE (OMEPRAZOLE) [Concomitant]
  14. GABAPENTIN (GABAPENTIN) [Concomitant]
  15. LAMOTRIGINE (LAMOTRIGINE) [Concomitant]

REACTIONS (12)
  - Embolism venous [None]
  - Drug interaction [None]
  - Haemoglobin decreased [None]
  - Platelet count decreased [None]
  - Troponin T increased [None]
  - Sinus tachycardia [None]
  - Electrocardiogram ST-T segment abnormal [None]
  - Chest pain [None]
  - Mitral valve incompetence [None]
  - Tricuspid valve incompetence [None]
  - Oxygen saturation decreased [None]
  - Alanine aminotransferase increased [None]
